FAERS Safety Report 15352933 (Version 5)
Quarter: 2019Q2

REPORT INFORMATION
  Report Type: Report from Study
  Country: US (occurrence: US)
  Receive Date: 20180905
  Receipt Date: 20190528
  Transmission Date: 20190711
  Serious: Yes (Other)
  Sender: FDA-Public Use
  Company Number: US-ALEXION PHARMACEUTICALS INC.-A201811459

PATIENT
  Age: 6 Year
  Sex: Female
  Weight: 32.5 kg

DRUGS (3)
  1. STRENSIQ [Suspect]
     Active Substance: ASFOTASE ALFA
     Indication: HYPOPHOSPHATASIA
     Dosage: UNK
     Route: 058
  2. STRENSIQ [Suspect]
     Active Substance: ASFOTASE ALFA
     Dosage: 33 MG, SIX TIMES/WEEK
     Route: 058
     Dates: start: 20180810
  3. GABAPENTIN. [Suspect]
     Active Substance: GABAPENTIN
     Indication: PRODUCT USED FOR UNKNOWN INDICATION
     Route: 065

REACTIONS (9)
  - Wrist fracture [Unknown]
  - Sleep disorder [Unknown]
  - Discomfort [Unknown]
  - Suicidal ideation [Unknown]
  - Pain [Unknown]
  - Foreign body [Unknown]
  - Musculoskeletal stiffness [Unknown]
  - Abnormal behaviour [Unknown]
  - Fatigue [Unknown]

NARRATIVE: CASE EVENT DATE: 201807
